FAERS Safety Report 8992849 (Version 2)
Quarter: 2013Q2

REPORT INFORMATION
  Report Type: Spontaneous
  Country: US (occurrence: US)
  Receive Date: 20130102
  Receipt Date: 20130521
  Transmission Date: 20140414
  Serious: Yes (Hospitalization, Other)
  Sender: FDA-Public Use
  Company Number: US-BAYER-2012-136291

PATIENT
  Age: 31 Year
  Sex: Female
  Weight: 90.7 kg

DRUGS (11)
  1. YAZ [Suspect]
     Dosage: UNK
     Dates: start: 200903
  2. ZOLOFT [Concomitant]
     Dosage: 50 MG, UNK
     Dates: start: 20090316
  3. SIMVASTATIN [Concomitant]
     Dosage: 20 MG, UNK
     Dates: start: 20090321
  4. VESICARE [Concomitant]
     Dosage: UNK
     Dates: start: 20090321
  5. PRENATAL VITAMINS [Concomitant]
     Dosage: UNK
     Dates: start: 20090321
  6. TUMS [CALCIUM CARBONATE] [Concomitant]
     Dosage: UNK
     Dates: start: 20090321
  7. RANITIDINE [Concomitant]
     Indication: DEPRESSION
     Dosage: UNK
     Dates: start: 20090321
  8. LEXAPRO [Concomitant]
     Indication: DEPRESSION
     Dosage: UNK
     Dates: start: 2009
  9. OXYBUTYNIN [Concomitant]
  10. PHENERGAN [Concomitant]
  11. PERCOCET [Concomitant]

REACTIONS (6)
  - Deep vein thrombosis [None]
  - Cholecystectomy [None]
  - Injury [None]
  - Pain [None]
  - Biliary dyskinesia [None]
  - Thrombophlebitis superficial [None]
